FAERS Safety Report 9528160 (Version 1)
Quarter: 2013Q1

REPORT INFORMATION
  Report Type: Spontaneous
  Country: US (occurrence: None)
  Receive Date: 20130314
  Receipt Date: 20130314
  Transmission Date: 20140127
  Serious: No
  Sender: FDA-Public Use
  Company Number: 1212USA011001

PATIENT
  Age: 57 Year
  Sex: Male
  Weight: 86.2 kg

DRUGS (12)
  1. PEGINTRON (PEGINTERFERON ALFA-2B) POWDER FOR INJECTION [Suspect]
     Dosage: 4 SYRINGES PER PACK
     Route: 058
     Dates: end: 201212
  2. RIBAVIRIN (RIBAVIRIN) CAPSULE, 200MG [Suspect]
     Route: 048
  3. VICTRELIS (BOCEPREVIR) CAPSULE, 200MG [Suspect]
  4. TELAPREVIR (TELAPREVIR) TABLET, 375MG [Suspect]
     Route: 048
     Dates: start: 201211
  5. RIBAPAK [Suspect]
  6. IMITREX [Concomitant]
  7. VIAGRA [Concomitant]
  8. VITAMINS [Concomitant]
  9. OMEGA-3 MARINE TRIGLYCERIDES [Concomitant]
  10. GLUCOSAMINE [Concomitant]
  11. VITAMIN D [Concomitant]
  12. TURMERIC [Concomitant]

REACTIONS (6)
  - Hypersensitivity [None]
  - Urticaria [None]
  - Rash generalised [None]
  - Migraine [None]
  - Memory impairment [None]
  - Feeling hot [None]
